FAERS Safety Report 16191026 (Version 2)
Quarter: 2019Q2

REPORT INFORMATION
  Report Type: Report from Study
  Country: IT (occurrence: IT)
  Receive Date: 20190412
  Receipt Date: 20190412
  Transmission Date: 20190711
  Serious: Yes (Hospitalization)
  Sender: FDA-Public Use
  Company Number: IT-BAYER-2019-070183

PATIENT
  Age: 84 Year
  Sex: Female

DRUGS (7)
  1. BRILIQUE [Suspect]
     Active Substance: TICAGRELOR
     Indication: PROPHYLAXIS
     Dosage: 180 MG, QD
     Route: 048
     Dates: start: 20190208, end: 20190321
  2. PANTOPRAZOLE [Concomitant]
     Active Substance: PANTOPRAZOLE
     Indication: HYPERCHLORHYDRIA
     Dosage: 20 MG, QD
     Route: 048
  3. ATORVASTATIN [Concomitant]
     Active Substance: ATORVASTATIN
     Indication: HYPERCHOLESTEROLAEMIA
     Dosage: 40 MG, QD
     Route: 048
  4. RAMIPRIL. [Concomitant]
     Active Substance: RAMIPRIL
     Indication: HYPERTENSION
     Dosage: 2.5 MG, QD
     Route: 048
  5. TAVOR (LORAZEPAM) [Concomitant]
     Active Substance: LORAZEPAM
     Indication: DEPRESSION
     Dosage: 1 MG, QD
     Route: 048
  6. CARDIOASPIRIN 100 MG [Suspect]
     Active Substance: ASPIRIN
     Indication: PROPHYLAXIS
     Dosage: 100 MG, QD
     Route: 048
     Dates: start: 20190208, end: 20190321
  7. QUETIAPINE FUMARATE. [Concomitant]
     Active Substance: QUETIAPINE FUMARATE
     Indication: DEPRESSION
     Dosage: 25 MG, QD
     Route: 048

REACTIONS (2)
  - Melaena [Not Recovered/Not Resolved]
  - Cachexia [Not Recovered/Not Resolved]

NARRATIVE: CASE EVENT DATE: 20190321
